FAERS Safety Report 25958284 (Version 1)
Quarter: 2025Q4

REPORT INFORMATION
  Report Type: Spontaneous
  Country: CH (occurrence: CH)
  Receive Date: 20251024
  Receipt Date: 20251024
  Transmission Date: 20260117
  Serious: Yes (Disabling)
  Sender: The J.Molner Company
  Company Number: CH-THE J. MOLNER COMPANY-202510000060

PATIENT
  Age: 41 Year
  Sex: Male

DRUGS (1)
  1. CIPROFLOXACIN [Suspect]
     Active Substance: CIPROFLOXACIN
     Indication: Chalazion
     Dosage: 500 MILLIGRAM, BID
     Route: 065

REACTIONS (6)
  - Tendonitis [Unknown]
  - Extrasystoles [Unknown]
  - Insomnia [Unknown]
  - Pain [Unknown]
  - Tinnitus [Unknown]
  - Livedo reticularis [Unknown]
